FAERS Safety Report 25193800 (Version 5)
Quarter: 2025Q3

REPORT INFORMATION
  Report Type: Report from Study
  Country: US (occurrence: US)
  Receive Date: 20250414
  Receipt Date: 20250902
  Transmission Date: 20251020
  Serious: Yes (Other)
  Sender: ABBVIE
  Company Number: US-ABBVIE-6219952

PATIENT
  Age: 71 Year
  Sex: Female

DRUGS (3)
  1. VENCLEXTA [Suspect]
     Active Substance: VENETOCLAX
     Indication: Chronic lymphocytic leukaemia
     Dosage: LAST ADMIN DATE 2025
     Route: 048
     Dates: start: 202501
  2. VENCLEXTA [Suspect]
     Active Substance: VENETOCLAX
     Indication: Chronic lymphocytic leukaemia
     Dosage: 2 VENCLEXTA OF 100 MG ONCE DAILY
     Route: 048
     Dates: start: 20250322
  3. BRUKINSA [Concomitant]
     Active Substance: ZANUBRUTINIB
     Indication: Chronic lymphocytic leukaemia

REACTIONS (14)
  - Intra-abdominal fluid collection [Not Recovered/Not Resolved]
  - Urinary tract infection [Unknown]
  - Blood uric acid decreased [Unknown]
  - Protein total decreased [Unknown]
  - Diabetes mellitus [Unknown]
  - Nausea [Not Recovered/Not Resolved]
  - Vomiting [Unknown]
  - Ageusia [Unknown]
  - Decreased appetite [Recovering/Resolving]
  - Abdominal pain upper [Recovering/Resolving]
  - Dysgeusia [Unknown]
  - Asthenia [Unknown]
  - Blood albumin decreased [Unknown]
  - Feeding disorder [Unknown]

NARRATIVE: CASE EVENT DATE: 20250101
